FAERS Safety Report 13109723 (Version 17)
Quarter: 2020Q1

REPORT INFORMATION
  Report Type: Spontaneous
  Country: US (occurrence: US)
  Receive Date: 20170112
  Receipt Date: 20200309
  Transmission Date: 20200409
  Serious: Yes (Disabling)
  Sender: FDA-Public Use
  Company Number: US-PFIZER INC-2016491928

PATIENT
  Age: 43 Year
  Sex: Female
  Weight: 84 kg

DRUGS (5)
  1. XELJANZ [Suspect]
     Active Substance: TOFACITINIB CITRATE
     Indication: RHEUMATOID ARTHRITIS
     Dosage: 5 MG, 2X/DAY (TAKE 1 TABLET TWICE A DAY AS DIRECT)
     Route: 048
     Dates: start: 20160807
  2. BIOTIN [Concomitant]
     Active Substance: BIOTIN
     Indication: ALOPECIA
     Dosage: UNK, DAILY (4-6 TABLETS, DAILY (TAKING IT MIDDAY))
     Dates: start: 201407
  3. SPIRONOLACTONE. [Concomitant]
     Active Substance: SPIRONOLACTONE
     Indication: SWELLING
     Dosage: 50 MG, 1X/DAY
     Route: 048
     Dates: start: 201409
  4. SAW PALMETTO [SERENOA REPENS] [Concomitant]
     Indication: ALOPECIA
     Dosage: UNK, 1X/DAY (2-3 CAPSULES, (ONCE A DAY))
     Route: 048
     Dates: start: 201407
  5. XELJANZ [Suspect]
     Active Substance: TOFACITINIB CITRATE
     Indication: ALOPECIA AREATA
     Dosage: 5 MG, 4X/DAY

REACTIONS (9)
  - Speech disorder [Not Recovered/Not Resolved]
  - Laryngitis [Unknown]
  - Nasopharyngitis [Recovering/Resolving]
  - Disease recurrence [Unknown]
  - Drug hypersensitivity [Unknown]
  - Off label use [Unknown]
  - Malaise [Not Recovered/Not Resolved]
  - Lung disorder [Unknown]
  - Dizziness [Unknown]
